FAERS Safety Report 4844173-5 (Version None)
Quarter: 2005Q4

REPORT INFORMATION
  Report Type: 
  Country: None (occurrence: None)
  Receive Date: 20051202
  Receipt Date: 20051123
  Transmission Date: 20060501
  Serious: Yes (Hospitalization, Other)
  Sender: FDA-Public Use
  Company Number: PHBS2005US17452

PATIENT
  Age: 3 Year
  Sex: Female

DRUGS (14)
  1. CYCLOSPORINE [Suspect]
     Indication: CORD BLOOD TRANSPLANT THERAPY
     Route: 042
  2. CYCLOSPORINE [Suspect]
     Route: 048
  3. MELPHALAN [Concomitant]
     Dosage: 60 MG/M2/DOSE DAILY
  4. ETOPOSIDE [Concomitant]
     Dosage: 400 MG/M2/DOSE DAILY
  5. IRRADIATION [Concomitant]
     Dosage: 500 CGY IN TWO FRACTIONS
  6. ANTITHYMOCYTE IMMUNOGLOBULIN [Concomitant]
     Dosage: 30 MG/KG/DAY
  7. PREDNISONE [Concomitant]
  8. G-CSF [Concomitant]
  9. IMMUNE GLOBULIN INTRAVENOUS (HUMAN) [Concomitant]
     Dosage: 250 MG/KG/WEEKLY FOR 1 MONTH
     Route: 042
  10. IMMUNE GLOBULIN INTRAVENOUS (HUMAN) [Concomitant]
     Dosage: 500 MG/KG EVERY 3 WEEKS
     Route: 042
  11. ANTIBIOTICS [Concomitant]
  12. VORICONAZOLE [Concomitant]
  13. FLUCONAZOLE [Concomitant]
  14. SULFAMETHOXAZOLE + TRIMETHOPRIM [Concomitant]

REACTIONS (7)
  - ANOREXIA [None]
  - CLOSTRIDIUM COLITIS [None]
  - DIARRHOEA [None]
  - GRAFT VERSUS HOST DISEASE [None]
  - MUCOSAL INFLAMMATION [None]
  - PYREXIA [None]
  - RASH [None]
